FAERS Safety Report 16712260 (Version 1)
Quarter: 2019Q3

REPORT INFORMATION
  Report Type: Spontaneous
  Country: FR (occurrence: FR)
  Receive Date: 20190816
  Receipt Date: 20190816
  Transmission Date: 20191004
  Serious: Yes (Other)
  Sender: FDA-Public Use
  Company Number: FR-MYLANLABS-2019M1075917

PATIENT
  Age: 58 Year
  Sex: Female

DRUGS (4)
  1. ZOPHREN                            /00955302/ [Concomitant]
     Active Substance: ONDANSETRON
     Indication: PREMEDICATION
     Dosage: UNK (INCONNUE)
     Route: 042
     Dates: start: 20180821
  2. SOLU-MEDROL [Concomitant]
     Active Substance: METHYLPREDNISOLONE SODIUM SUCCINATE
     Indication: PREMEDICATION
     Dosage: 60 MILLIGRAM
     Route: 042
     Dates: start: 20180821
  3. CARBOPLATIN. [Suspect]
     Active Substance: CARBOPLATIN
     Indication: MALIGNANT PERITONEAL NEOPLASM
     Dosage: 330 MILLIGRAM
     Route: 042
     Dates: start: 20180821, end: 20180928
  4. EMEND [Concomitant]
     Active Substance: APREPITANT
     Indication: PREMEDICATION
     Dosage: 1 DOSAGE FORM, CYCLE
     Route: 048
     Dates: start: 20180821

REACTIONS (5)
  - Anaphylactic reaction [Recovered/Resolved]
  - Cough [Recovered/Resolved]
  - Rhinitis [Recovered/Resolved]
  - Pruritus [Recovered/Resolved]
  - Mucocutaneous rash [Recovered/Resolved]

NARRATIVE: CASE EVENT DATE: 20180928
